FAERS Safety Report 4881337-9 (Version None)
Quarter: 2006Q1

REPORT INFORMATION
  Report Type: 
  Country: None (occurrence: None)
  Receive Date: 20060116
  Receipt Date: 20060106
  Transmission Date: 20060701
  Serious: Yes (Death)
  Sender: FDA-Public Use
  Company Number: US-BRACCO-BDI-007861

PATIENT

DRUGS (1)
  1. GASTROGRAFIN [Suspect]
     Route: 050

REACTIONS (1)
  - DEATH [None]
